FAERS Safety Report 24190369 (Version 1)
Quarter: 2024Q3

REPORT INFORMATION
  Report Type: Spontaneous
  Country: US (occurrence: US)
  Receive Date: 20240808
  Receipt Date: 20240808
  Transmission Date: 20241016
  Serious: No
  Sender: ASSERTIO THERAPEUTICS
  Company Number: US-ASSERTIO THERAPEUTICS, INC.-US-2023AST000483

PATIENT
  Sex: Female

DRUGS (1)
  1. OXAYDO [Suspect]
     Active Substance: OXYCODONE HYDROCHLORIDE
     Indication: Product used for unknown indication
     Dosage: UNK
     Route: 065

REACTIONS (1)
  - Wrong technique in product usage process [Unknown]
